FAERS Safety Report 8909409 (Version 1)
Quarter: 2012Q4

REPORT INFORMATION
  Report Type: Spontaneous
  Country: GB (occurrence: None)
  Receive Date: 20121107
  Receipt Date: 20121107
  Transmission Date: 20130627
  Serious: Yes (Other)
  Sender: FDA-Public Use
  Company Number: AUR-APL-2012-04660

PATIENT
  Age: 83 Year
  Sex: Male
  Weight: 84 kg

DRUGS (6)
  1. BISOPROLOL [Suspect]
     Indication: DRUG USE FOR UNKNOWN INDICATION
     Dates: start: 20121010
  2. CO-CODAMOL (PANADEINE CO) [Concomitant]
  3. CO-DYDRAMOL (PARAMOL-118) [Concomitant]
  4. MACROCOL (MACROCOL) [Concomitant]
  5. SENNA (SENNA ALEXANDRINA) [Concomitant]
  6. WARFARIN SODIUM (WARFARIN SODIUM) [Concomitant]

REACTIONS (2)
  - Drug intolerance [None]
  - Tremor [None]
